FAERS Safety Report 15929600 (Version 2)
Quarter: 2020Q1

REPORT INFORMATION
  Report Type: Spontaneous
  Country: US (occurrence: US)
  Receive Date: 20190206
  Receipt Date: 20200213
  Transmission Date: 20200409
  Serious: No
  Sender: FDA-Public Use
  Company Number: US-SA-2019SA032630

PATIENT
  Age: 20 Year
  Sex: Male
  Weight: 79 kg

DRUGS (1)
  1. DUPIXENT [Suspect]
     Active Substance: DUPILUMAB
     Indication: DERMATITIS ATOPIC
     Dosage: 300 MG, QOW
     Route: 058
     Dates: start: 20190115

REACTIONS (10)
  - Ocular hyperaemia [Unknown]
  - Skin exfoliation [Unknown]
  - Skin disorder [Unknown]
  - Eye pruritus [Unknown]
  - Pruritus [Unknown]
  - Injection site pain [Recovered/Resolved]
  - Dry skin [Unknown]
  - Skin weeping [Unknown]
  - Dry eye [Unknown]
  - Skin haemorrhage [Unknown]

NARRATIVE: CASE EVENT DATE: 202002
